FAERS Safety Report 24986045 (Version 1)
Quarter: 2025Q1

REPORT INFORMATION
  Report Type: Spontaneous
  Country: DE (occurrence: DE)
  Receive Date: 20250219
  Receipt Date: 20250219
  Transmission Date: 20250408
  Serious: Yes (Life-Threatening, Hospitalization)
  Sender: BAYER HEALTHCARE PHARMACEUTICALS INC.
  Company Number: DE-BAYER-2024A150272

PATIENT
  Age: 76 Year
  Sex: Male
  Weight: 75 kg

DRUGS (11)
  1. NUBEQA [Suspect]
     Active Substance: DAROLUTAMIDE
     Indication: Hormone-dependent prostate cancer
     Dosage: 600 MG, QD
     Dates: start: 20240819, end: 20241010
  2. DOCETAXEL [Concomitant]
     Active Substance: DOCETAXEL
     Indication: Hormone-dependent prostate cancer
     Dosage: 50 MG, Q2WK
     Route: 042
     Dates: start: 20240726, end: 20241031
  3. DOCETAXEL [Concomitant]
     Active Substance: DOCETAXEL
     Indication: Hormone-dependent prostate cancer
     Route: 030
     Dates: start: 20240705, end: 20241115
  4. DOCETAXEL [Concomitant]
     Active Substance: DOCETAXEL
     Indication: Hormone-dependent prostate cancer
     Dosage: 97 MG, Q2WK
     Route: 042
     Dates: start: 20240726, end: 20241113
  5. TRENANTONE [Concomitant]
     Active Substance: LEUPROLIDE ACETATE
     Indication: Hormone-dependent prostate cancer
     Route: 030
     Dates: start: 20240705, end: 20241010
  6. TRENANTONE [Concomitant]
     Active Substance: LEUPROLIDE ACETATE
     Indication: Hormone-dependent prostate cancer
     Route: 030
     Dates: start: 20240705, end: 20241114
  7. TRENANTONE [Concomitant]
     Active Substance: LEUPROLIDE ACETATE
     Indication: Hormone-dependent prostate cancer
     Route: 030
     Dates: start: 20241013, end: 20241113
  8. LEUPROLIDE ACETATE [Concomitant]
     Active Substance: LEUPROLIDE ACETATE
     Indication: Prostate cancer
     Dosage: 11.25 MG, Q3MON
     Route: 058
     Dates: start: 20240705, end: 20241031
  9. LEUPROLIDE ACETATE [Concomitant]
     Active Substance: LEUPROLIDE ACETATE
     Indication: Prostate cancer
     Dosage: 11 MG, Q3MON
     Route: 058
     Dates: start: 20240705, end: 20241104
  10. METOPROLOL [Concomitant]
     Active Substance: METOPROLOL
     Indication: Hypertension
     Dosage: 95 MG, QD
     Route: 048
     Dates: start: 20090630
  11. FOLIC ACID [Concomitant]
     Active Substance: FOLIC ACID
     Indication: Supportive care
     Dosage: 800 MG, QD
     Route: 048
     Dates: start: 20240515

REACTIONS (6)
  - Respiratory tract infection [Not Recovered/Not Resolved]
  - General physical health deterioration [Not Recovered/Not Resolved]
  - Acute abdomen [Not Recovered/Not Resolved]
  - Myocardial infarction [Recovered/Resolved with Sequelae]
  - Thrombotic thrombocytopenic purpura [None]
  - Thrombocytopenia [None]

NARRATIVE: CASE EVENT DATE: 20241010
